FAERS Safety Report 20581348 (Version 1)
Quarter: 2022Q1

REPORT INFORMATION
  Report Type: Spontaneous
  Country: ES (occurrence: ES)
  Receive Date: 20220311
  Receipt Date: 20220311
  Transmission Date: 20220423
  Serious: Yes (Other)
  Sender: FDA-Public Use
  Company Number: None

PATIENT
  Age: 86 Year
  Sex: Female

DRUGS (15)
  1. FENTANYL [Suspect]
     Active Substance: FENTANYL
     Indication: Pain
     Dosage: PATCH EVERY 72 HOURS , FENTANILO (1543A)
     Route: 061
     Dates: start: 20211015, end: 20220216
  2. CITALOPRAM CINFA [Concomitant]
     Indication: Vertigo
     Dosage: 20.0 MG C/24 H NOC  , 56 TABLETS , CITALOPRAM CINFA  20 MG COMPRIMIDOS RECUBIERTOS CON PELICULA EFG
     Route: 048
     Dates: start: 20200507
  3. BISOPROLOL FUMARATE [Concomitant]
     Active Substance: BISOPROLOL FUMARATE
     Indication: Product used for unknown indication
     Dosage: 5.0 MG DE , 60 TABLETS (PVC/PVDC-ALUMINUM BLISTER) , BISOPROLOL CINFA 5 MG COMPRIMIDOS EFG , 60 COMP
     Route: 048
     Dates: start: 20171230
  4. CLOTRIMAZOL CANESMED [Concomitant]
     Indication: Body tinea
     Dosage: 1.0 APLIC C/12 H , 1 TUBE OF 30 G , CLOTRIMAZOL CANESMED 10 MG/G CREMA EFG
     Route: 061
     Dates: start: 20220127, end: 20220209
  5. MYSOLINE [Concomitant]
     Active Substance: PRIMIDONE
     Indication: Senile dementia
     Dosage: 125.0 MG DECE , 100 TABLETS
     Route: 048
     Dates: start: 20210504
  6. MIRTAZAPINA ALTER [Concomitant]
     Indication: Depression
     Dosage: 15.0 MG EVERY 48 HOURS , 60 TABLETS , MIRTAZAPINA ALTER 15 MG COMPRIMIDOS RECUBIERTOS CON PELICULA E
     Route: 048
     Dates: start: 20200508
  7. CYANOCOBALAMIN\FOLIC ACID [Concomitant]
     Active Substance: CYANOCOBALAMIN\FOLIC ACID
     Indication: Anaemia
     Dosage: 1.0 COMP A-DE , STRENGTH : 400/2 MICROGRAMS , 28 TABLETS
     Route: 048
     Dates: start: 20210519
  8. NAPROXENO SODICO AUROVITAS [Concomitant]
     Indication: Lumbar spinal stenosis
     Dosage: 550.0 MG DECE ,  40 TABLETS,  NAPROXENO SODICO AUROVITAS 550 MG COMPRIMIDOS RECUBIERTOS CON PELICULA
     Route: 048
     Dates: start: 20211014
  9. DILUTOL [Concomitant]
     Indication: Essential hypertension
     Dosage: 5.0 MG DE , 30 TABLETS
     Route: 048
     Dates: start: 20210212
  10. FENOFIBRATE [Concomitant]
     Active Substance: FENOFIBRATE
     Indication: Hypertriglyceridaemia
     Dosage: 160.0 MG CE , 30 TABLETS
     Route: 048
     Dates: start: 20190920
  11. CLORAZEPATE DIPOTASSIUM [Concomitant]
     Active Substance: CLORAZEPATE DIPOTASSIUM
     Indication: Anxiety
     Dosage: 5.0 MG DECE , 30 CAPSULES
     Route: 048
     Dates: start: 20200312
  12. OMEPRAZOLE [Concomitant]
     Active Substance: OMEPRAZOLE
     Indication: Dyspepsia
     Dosage: 20.0 MG A-DE  , 56 CAPSULES ,  OMEPRAZOL CINFAMED 20 MG CAPSULAS DURAS GASTRORESISTENTES EFG
     Route: 048
     Dates: start: 20130207
  13. SIMVASTATINA CINFA [Concomitant]
     Indication: Type IIa hyperlipidaemia
     Dosage: 20.0 MG CE ,28 TABLETS ,  SIMVASTATINA CINFA 20 MG COMPRIMIDOS RECUBIERTOS CON PELICULA EFG
     Route: 048
     Dates: start: 20151221
  14. CHLORPROMAZINE [Concomitant]
     Active Substance: CHLORPROMAZINE
     Indication: Anxiety
     Dosage: 25.0 MG C/24 H , 50 TABLETS ,  LARGACTIL 25 MG COMPRIMIDOS RECUBIERTOS CON PELICULA
     Route: 048
     Dates: start: 20200312
  15. LISINOPRIL CINFA [Concomitant]
     Indication: Essential hypertension
     Dosage: 20.0 MG DE , 28 TABLETS , LISINOPRIL CINFA  20 MG COMPRIMIDOS EFG
     Route: 048
     Dates: start: 20210401

REACTIONS (2)
  - Fatigue [Recovering/Resolving]
  - Dizziness [Recovering/Resolving]

NARRATIVE: CASE EVENT DATE: 20220216
